FAERS Safety Report 9495087 (Version 1)
Quarter: 2013Q3

REPORT INFORMATION
  Report Type: Spontaneous
  Country: NZ (occurrence: NZ)
  Receive Date: 20130903
  Receipt Date: 20130903
  Transmission Date: 20140515
  Serious: Yes (Hospitalization, Other)
  Sender: FDA-Public Use
  Company Number: NZ-PFIZER INC-2013248375

PATIENT
  Sex: Male

DRUGS (3)
  1. LIPITOR [Suspect]
     Dosage: 10 MG, UNK
     Dates: start: 201306
  2. INHIBACE PLUS [Concomitant]
  3. ASPIRIN [Concomitant]

REACTIONS (6)
  - Swelling face [Unknown]
  - Local swelling [Unknown]
  - Urticaria [Unknown]
  - Conjunctivitis [Unknown]
  - Arthralgia [Unknown]
  - Surgery [Unknown]
